FAERS Safety Report 18216556 (Version 1)
Quarter: 2020Q3

REPORT INFORMATION
  Report Type: Spontaneous
  Country: PH (occurrence: PH)
  Receive Date: 20200901
  Receipt Date: 20200901
  Transmission Date: 20201103
  Serious: No
  Sender: FDA-Public Use
  Company Number: PH-ALKEM LABORATORIES LIMITED-PH-ALKEM-2020-04248

PATIENT
  Age: 44 Year
  Sex: Female

DRUGS (2)
  1. TRIAMCINOLONE ACETONIDE. [Concomitant]
     Active Substance: TRIAMCINOLONE ACETONIDE
     Indication: APHTHOUS ULCER
     Dosage: 10 MG/1ML, QD
     Route: 065
  2. COLCHICINE. [Suspect]
     Active Substance: COLCHICINE
     Indication: APHTHOUS ULCER
     Dosage: 1.5 MILLIGRAM, QD
     Route: 065

REACTIONS (1)
  - Gastric disorder [Unknown]
